FAERS Safety Report 26044250 (Version 1)
Quarter: 2025Q4

REPORT INFORMATION
  Report Type: Spontaneous
  Country: EU (occurrence: EU)
  Receive Date: 20251114
  Receipt Date: 20251114
  Transmission Date: 20260117
  Serious: Yes (Other)
  Sender: DR REDDYS
  Company Number: EU-RDY-FRA/2025/11/016999

PATIENT
  Age: 40 Year
  Sex: Male

DRUGS (4)
  1. CYCLOPHOSPHAMIDE [Suspect]
     Active Substance: CYCLOPHOSPHAMIDE
     Indication: Medulloblastoma
     Dosage: 50 MG/D
     Dates: start: 202401
  2. CYCLOPHOSPHAMIDE [Suspect]
     Active Substance: CYCLOPHOSPHAMIDE
     Indication: Metastases to bone
  3. VISMODEGIB [Suspect]
     Active Substance: VISMODEGIB
     Indication: Medulloblastoma
     Dosage: 150 MG/D
     Dates: start: 202301
  4. VISMODEGIB [Suspect]
     Active Substance: VISMODEGIB
     Indication: Metastases to bone

REACTIONS (4)
  - Lymphopenia [Unknown]
  - Alopecia [Unknown]
  - Myalgia [Unknown]
  - Product use in unapproved indication [Unknown]
